FAERS Safety Report 11327329 (Version 4)
Quarter: 2015Q3

REPORT INFORMATION
  Report Type: Spontaneous
  Country: US (occurrence: US)
  Receive Date: 20150731
  Receipt Date: 20150910
  Transmission Date: 20151125
  Serious: No
  Sender: FDA-Public Use
  Company Number: US-PFIZER INC-2015251645

PATIENT
  Age: 90 Year
  Sex: Female
  Weight: 45 kg

DRUGS (12)
  1. LYRICA [Suspect]
     Active Substance: PREGABALIN
     Indication: NECK PAIN
     Dosage: 25 MG, 1X/DAY (25 MG CAPSULE ONCE AT NIGHT)
     Route: 048
     Dates: start: 20150615, end: 20150617
  2. ACETAMINOPHEN. [Concomitant]
     Active Substance: ACETAMINOPHEN
     Indication: HEADACHE
     Dosage: 500 MG, UNK
  3. LYRICA [Suspect]
     Active Substance: PREGABALIN
     Indication: PAIN IN JAW
  4. LYRICA [Suspect]
     Active Substance: PREGABALIN
     Indication: HEADACHE
  5. TRAMADOL. [Concomitant]
     Active Substance: TRAMADOL
     Dosage: BREAK IN HALF IF NEEDED LESS THAT 8 HOURS
  6. LYRICA [Suspect]
     Active Substance: PREGABALIN
     Indication: TRIGEMINAL NEURALGIA
  7. ALPRAZOLAM. [Concomitant]
     Active Substance: ALPRAZOLAM
     Indication: SLEEP DISORDER
     Dosage: 25MG TABLET, TOOK HALF TABLET AS NEEDED
  8. TRAMADOL. [Concomitant]
     Active Substance: TRAMADOL
     Dosage: UNK
     Dates: start: 20150130
  9. TYLENOL [Concomitant]
     Active Substance: ACETAMINOPHEN
     Dosage: UNK
  10. ACETAMINOPHEN. [Concomitant]
     Active Substance: ACETAMINOPHEN
     Dosage: 325 MG, UNK
  11. OXYCODONE [Concomitant]
     Active Substance: OXYCODONE
     Dosage: UNK
  12. TRAMADOL. [Concomitant]
     Active Substance: TRAMADOL
     Indication: MUSCULOSKELETAL DISCOMFORT
     Dosage: 50 MG EVERY 8 HOURS

REACTIONS (6)
  - Drug intolerance [Unknown]
  - Product use issue [Unknown]
  - Feeling abnormal [Unknown]
  - Pain [Unknown]
  - Somnolence [Unknown]
  - Disorientation [Unknown]

NARRATIVE: CASE EVENT DATE: 201506
